FAERS Safety Report 19259207 (Version 1)
Quarter: 2021Q2

REPORT INFORMATION
  Report Type: Spontaneous
  Country: GB (occurrence: GB)
  Receive Date: 20210514
  Receipt Date: 20210514
  Transmission Date: 20210717
  Serious: Yes (Hospitalization, Other)
  Sender: FDA-Public Use
  Company Number: GB-BIOVITRUM-2021GB4440

PATIENT
  Age: 46 Year
  Sex: Male

DRUGS (2)
  1. ASTRAZENECA COVID?19 VACCINE [Suspect]
     Active Substance: AZD-1222
     Indication: PRODUCT USED FOR UNKNOWN INDICATION
     Dosage: DOSE 1
     Dates: start: 20210430
  2. ANAKINRA [Suspect]
     Active Substance: ANAKINRA
     Indication: PRODUCT USED FOR UNKNOWN INDICATION

REACTIONS (2)
  - Pyrexia [Unknown]
  - Haemophagocytic lymphohistiocytosis [Not Recovered/Not Resolved]

NARRATIVE: CASE EVENT DATE: 20210505
